FAERS Safety Report 10020377 (Version 1)
Quarter: 2014Q1

REPORT INFORMATION
  Report Type: Spontaneous
  Country: US (occurrence: US)
  Receive Date: 20140319
  Receipt Date: 20140319
  Transmission Date: 20141002
  Serious: No
  Sender: FDA-Public Use
  Company Number: US-BIOGENIDEC-2014BI022346

PATIENT
  Sex: Female

DRUGS (1)
  1. TECFIDERA [Suspect]
     Indication: MULTIPLE SCLEROSIS
     Dates: start: 20140217, end: 20140302

REACTIONS (8)
  - Adverse drug reaction [Not Recovered/Not Resolved]
  - Headache [Unknown]
  - Eyelid function disorder [Unknown]
  - Gastric disorder [Unknown]
  - Fatigue [Unknown]
  - Burning sensation [Unknown]
  - Flushing [Unknown]
  - Feeling hot [Unknown]
